FAERS Safety Report 5191655-5 (Version None)
Quarter: 2006Q4

REPORT INFORMATION
  Report Type: 
  Country: None (occurrence: None)
  Receive Date: 20061219
  Receipt Date: 20061207
  Transmission Date: 20070319
  Serious: Yes (Hospitalization, Other)
  Sender: FDA-Public Use
  Company Number: 2006152150

PATIENT
  Age: 12 Year
  Sex: Female

DRUGS (1)
  1. GENOTROPIN [Suspect]
     Indication: GROWTH HORMONE DEFICIENCY
     Dosage: 1 MG (EVERY 6/7 DAYS)
     Dates: start: 20061101

REACTIONS (4)
  - HEADACHE [None]
  - INFECTION [None]
  - NECK PAIN [None]
  - SINUSITIS [None]
